FAERS Safety Report 9323781 (Version 1)
Quarter: 2013Q2

REPORT INFORMATION
  Report Type: Spontaneous
  Country: US (occurrence: None)
  Receive Date: 20130529
  Receipt Date: 20130529
  Transmission Date: 20140414
  Serious: Yes (Other)
  Sender: FDA-Public Use
  Company Number: FK201301625

PATIENT
  Sex: 0

DRUGS (2)
  1. PROPRANOLOL [Suspect]
     Indication: PHACES SYNDROME
     Dosage: 1 MG/KG/DAY DIVIDED INTO 3 DOSES DAILY.
     Route: 048
  2. CORTICOSTEROIDS (CORTICOSTEROIDS) [Concomitant]

REACTIONS (3)
  - Arterial disorder [None]
  - Sleep disorder [None]
  - Peripheral artery thrombosis [None]
